FAERS Safety Report 22887365 (Version 2)
Quarter: 2024Q2

REPORT INFORMATION
  Report Type: Spontaneous
  Country: US (occurrence: US)
  Receive Date: 20230831
  Receipt Date: 20240419
  Transmission Date: 20240715
  Serious: Yes (Hospitalization)
  Sender: FDA-Public Use
  Company Number: US-SERVIER-S23009799

PATIENT

DRUGS (6)
  1. ASPARLAS [Suspect]
     Active Substance: CALASPARGASE PEGOL-MKNL
     Indication: B-cell type acute leukaemia
     Dosage: 1450 U, INDUCTION D4, CONSOLIDATION D15, D43
     Route: 042
     Dates: start: 20230122, end: 20230717
  2. ASPARLAS [Suspect]
     Active Substance: CALASPARGASE PEGOL-MKNL
     Dosage: 1450 U, DELAYED INTENSIFICATION D4
     Route: 042
     Dates: start: 20230717, end: 20230717
  3. GABAPENTIN [Concomitant]
     Active Substance: GABAPENTIN
     Indication: Neuropathy peripheral
     Dosage: 350 MG, QD (100 MG AM, 100 MG NOON, 150 MG PM)
     Route: 048
     Dates: start: 20230810
  4. THIOGUANINE [Concomitant]
     Active Substance: THIOGUANINE
     Indication: Acute lymphocytic leukaemia
     Dosage: 260 MG, EVERY 1 WEEK
     Route: 048
     Dates: start: 20230803
  5. ONDANSETRON [Concomitant]
     Active Substance: ONDANSETRON
     Indication: Vomiting
     Dosage: 2 MG, TID
     Route: 048
     Dates: start: 20230123
  6. ONDANSETRON [Concomitant]
     Active Substance: ONDANSETRON
     Indication: Nausea

REACTIONS (7)
  - Hypoglycaemia [Recovering/Resolving]
  - Hypoglycaemia [Recovered/Resolved]
  - Anaemia [Not Recovered/Not Resolved]
  - Neutropenia [Recovered/Resolved]
  - Alanine aminotransferase increased [Not Recovered/Not Resolved]
  - Aspartate aminotransferase increased [Not Recovered/Not Resolved]
  - Thrombocytopenia [Recovered/Resolved]

NARRATIVE: CASE EVENT DATE: 20230216
